FAERS Safety Report 9094297 (Version 1)
Quarter: 2013Q1

REPORT INFORMATION
  Report Type: Spontaneous
  Country: US (occurrence: US)
  Receive Date: 20130218
  Receipt Date: 20130218
  Transmission Date: 20140127
  Serious: No
  Sender: FDA-Public Use
  Company Number: US-ROCHE-1192030

PATIENT
  Sex: Male

DRUGS (1)
  1. TAMIFLU [Suspect]
     Indication: ANTIVIRAL PROPHYLAXIS
     Route: 065

REACTIONS (1)
  - Medication error [Unknown]
